FAERS Safety Report 6339171-9 (Version None)
Quarter: 2009Q3

REPORT INFORMATION
  Report Type: 
  Country: None (occurrence: None)
  Receive Date: 20090903
  Receipt Date: 20090827
  Transmission Date: 20100115
  Serious: Yes (Hospitalization, Other)
  Sender: FDA-Public Use
  Company Number: US-JNJFOC-20090809154

PATIENT
  Sex: Female

DRUGS (3)
  1. REMICADE [Suspect]
     Route: 042
  2. REMICADE [Suspect]
     Indication: CROHN'S DISEASE
     Dosage: 4 INFUSIONS 2 YEARS AGO
     Route: 042
  3. MERCAPTOPURINE [Concomitant]
     Indication: CROHN'S DISEASE

REACTIONS (6)
  - ARTHRALGIA [None]
  - CHEST PAIN [None]
  - DYSPNOEA [None]
  - MUSCULOSKELETAL STIFFNESS [None]
  - OROPHARYNGEAL PAIN [None]
  - PRURITUS [None]
